FAERS Safety Report 11233066 (Version 1)
Quarter: 2015Q3

REPORT INFORMATION
  Report Type: Spontaneous
  Country: MY (occurrence: MY)
  Receive Date: 20150701
  Receipt Date: 20150701
  Transmission Date: 20151125
  Serious: Yes (Hospitalization, Other)
  Sender: FDA-Public Use
  Company Number: PHHY2015MY078504

PATIENT
  Age: 38 Year
  Sex: Male

DRUGS (4)
  1. CLOZARIL [Suspect]
     Active Substance: CLOZAPINE
     Indication: SCHIZOPHRENIA
     Dosage: UNK
     Dates: start: 2008
  2. SULPRIDE [Suspect]
     Active Substance: SULPIRIDE
     Indication: PRODUCT USED FOR UNKNOWN INDICATION
     Dosage: 200 MG, UNK
     Route: 065
  3. EPILIM [Suspect]
     Active Substance: VALPROATE SODIUM
     Indication: SEIZURE
     Route: 065
  4. CLOZARIL [Suspect]
     Active Substance: CLOZAPINE
     Dosage: 500 MG, QD
     Dates: start: 2013

REACTIONS (3)
  - Cholecystitis [Unknown]
  - Seizure [Unknown]
  - Ileus paralytic [Unknown]
